FAERS Safety Report 6655762-X (Version None)
Quarter: 2010Q1

REPORT INFORMATION
  Report Type: 
  Country: None (occurrence: None)
  Receive Date: 20100329
  Receipt Date: 20100325
  Transmission Date: 20100710
  Serious: Yes (Hospitalization)
  Sender: FDA-Public Use
  Company Number: IT-ROCHE-690042

PATIENT
  Sex: Female

DRUGS (2)
  1. AVASTIN [Suspect]
     Indication: BREAST CANCER
     Dosage: FREQUENCY: CYCLE
     Route: 042
     Dates: start: 20090612, end: 20100223
  2. BISOPROLOL FUMARATE [Concomitant]
     Route: 048
     Dates: start: 20090511, end: 20100223

REACTIONS (2)
  - HYPERPYREXIA [None]
  - NAIL BED INFECTION BACTERIAL [None]
